FAERS Safety Report 4279854-8 (Version None)
Quarter: 2004Q1

REPORT INFORMATION
  Report Type: 
  Country: None (occurrence: None)
  Receive Date: 20040126
  Receipt Date: 20040120
  Transmission Date: 20041129
  Serious: Yes (Other)
  Sender: FDA-Public Use
  Company Number: DE-JNJFOC-20040103702

PATIENT
  Age: 43 Year
  Sex: Female

DRUGS (1)
  1. EPIPEVARYL (ECONAZOLE NITRATE) SOLUTION [Suspect]
     Indication: TINEA VERSICOLOUR
     Dosage: CUTANEOUS
     Route: 003
     Dates: start: 20040116

REACTIONS (3)
  - DERMATITIS ALLERGIC [None]
  - FEAR [None]
  - LOCAL SWELLING [None]
